FAERS Safety Report 6721964-7 (Version None)
Quarter: 2010Q2

REPORT INFORMATION
  Report Type: 
  Country: None (occurrence: None)
  Receive Date: 20100512
  Receipt Date: 20100504
  Transmission Date: 20101027
  Serious: Yes (Hospitalization)
  Sender: FDA-Public Use
  Company Number: A0858743A

PATIENT
  Sex: Male
  Weight: 56 kg

DRUGS (2)
  1. SERETIDE [Suspect]
     Dosage: 1PUFF TWICE PER DAY
     Route: 065
     Dates: start: 20050101
  2. COMBIVENT [Concomitant]
     Dates: start: 20050101

REACTIONS (1)
  - RESPIRATORY ARREST [None]
